FAERS Safety Report 11924942 (Version 2)
Quarter: 2016Q1

REPORT INFORMATION
  Report Type: Spontaneous
  Country: US (occurrence: US)
  Receive Date: 20160118
  Receipt Date: 20160120
  Transmission Date: 20160526
  Serious: Yes (Other)
  Sender: FDA-Public Use
  Company Number: US-GLAXOSMITHKLINE-US2015136263

PATIENT
  Sex: Female
  Weight: 72 kg

DRUGS (12)
  1. ZIPRASIDONE. [Suspect]
     Active Substance: ZIPRASIDONE
     Indication: DEPRESSION
  2. CITRUCEL [Suspect]
     Active Substance: METHYLCELLULOSE (4000 MPA.S)
     Indication: PRODUCT USED FOR UNKNOWN INDICATION
     Dosage: UNK
     Dates: end: 20150922
  3. WELLBUTRIN [Suspect]
     Active Substance: BUPROPION HYDROCHLORIDE
     Indication: DEPRESSION
     Dosage: 100 MG, QD
     Dates: start: 2001, end: 2003
  4. GEODON [Suspect]
     Active Substance: ZIPRASIDONE HYDROCHLORIDE\ZIPRASIDONE MESYLATE
     Indication: DEPRESSION
     Dosage: 20 MG, BID
     Dates: start: 2009
  5. GEODON [Suspect]
     Active Substance: ZIPRASIDONE HYDROCHLORIDE\ZIPRASIDONE MESYLATE
     Indication: ANXIETY
  6. ZYPREXA [Suspect]
     Active Substance: OLANZAPINE
     Indication: ANXIETY
  7. LORAZEPAM. [Suspect]
     Active Substance: LORAZEPAM
     Indication: INSOMNIA
     Dosage: 2-3 TABLETS AS NEEDED
     Dates: start: 2009
  8. PAXIL [Suspect]
     Active Substance: PAROXETINE HYDROCHLORIDE
     Indication: ANXIETY
  9. ZIPRASIDONE. [Suspect]
     Active Substance: ZIPRASIDONE
     Indication: ANXIETY
  10. ZYPREXA [Suspect]
     Active Substance: OLANZAPINE
     Indication: DEPRESSION
     Dosage: 5 MG, QD
     Dates: start: 2001, end: 2009
  11. PAXIL [Suspect]
     Active Substance: PAROXETINE HYDROCHLORIDE
     Indication: DEPRESSION
     Dosage: 10 MG, QD
     Dates: start: 1995
  12. CYMBALTA [Suspect]
     Active Substance: DULOXETINE HYDROCHLORIDE
     Dosage: 20 MG, BID
     Dates: start: 2009, end: 2012

REACTIONS (30)
  - Insomnia [Recovered/Resolved]
  - Drug ineffective [Recovered/Resolved]
  - Chills [Not Recovered/Not Resolved]
  - Myalgia [Not Recovered/Not Resolved]
  - Migraine with aura [Recovered/Resolved]
  - Liver function test abnormal [Unknown]
  - Weight decreased [Unknown]
  - Drug dependence [Unknown]
  - Migraine [Recovered/Resolved]
  - Depression [Recovered/Resolved]
  - Feeling abnormal [Unknown]
  - Dizziness [Not Recovered/Not Resolved]
  - Hyperhidrosis [Not Recovered/Not Resolved]
  - Hypoaesthesia [Recovered/Resolved]
  - Cardiac flutter [Not Recovered/Not Resolved]
  - Blood cholesterol increased [Recovered/Resolved]
  - Tremor [Not Recovered/Not Resolved]
  - Aphasia [Recovered/Resolved]
  - Logorrhoea [Recovered/Resolved]
  - Sleep disorder [Not Recovered/Not Resolved]
  - Anxiety [Recovered/Resolved]
  - Feeling hot [Not Recovered/Not Resolved]
  - Nausea [Recovered/Resolved]
  - Weight increased [Unknown]
  - Psychomotor hyperactivity [Recovered/Resolved]
  - Hepatic steatosis [Not Recovered/Not Resolved]
  - Fall [Unknown]
  - Hypomania [Recovered/Resolved]
  - Agitation [Recovered/Resolved]
  - Dyspnoea [Unknown]

NARRATIVE: CASE EVENT DATE: 1995
